FAERS Safety Report 4730533-X (Version None)
Quarter: 2005Q3

REPORT INFORMATION
  Report Type: 
  Country: None (occurrence: None)
  Receive Date: 20050725
  Receipt Date: 20050209
  Transmission Date: 20060218
  Serious: No
  Sender: FDA-Public Use
  Company Number: USA050290424

PATIENT
  Sex: Female

DRUGS (1)
  1. STRATTERA [Suspect]
     Dosage: 40 MG

REACTIONS (2)
  - AFFECTIVE DISORDER [None]
  - SOMNOLENCE [None]
